FAERS Safety Report 8632302 (Version 2)
Quarter: 2012Q4

REPORT INFORMATION
  Report Type: 
  Country: BR (occurrence: BR)
  Receive Date: 20120625
  Receipt Date: 20121004
  Transmission Date: 20130627
  Serious: Yes (Other)
  Sender: FDA-Public Use
  Company Number: BR-ASTRAZENECA-2012SE40409

PATIENT
  Age: 53 Year
  Sex: Female
  Weight: 68 kg

DRUGS (2)
  1. ATACAND HCT [Suspect]
     Indication: HYPERTENSION
     Dosage: 8/12.5 MG, DAILY
     Route: 048
     Dates: start: 20120528
  2. BRILINTA [Suspect]
     Indication: VENOUS OCCLUSION
     Route: 048
     Dates: start: 201206

REACTIONS (1)
  - Venous occlusion [Recovered/Resolved]
